FAERS Safety Report 16396841 (Version 1)
Quarter: 2019Q2

REPORT INFORMATION
  Report Type: Spontaneous
  Country: CH (occurrence: CH)
  Receive Date: 20190606
  Receipt Date: 20190606
  Transmission Date: 20190711
  Serious: Yes (Life-Threatening, Other)
  Sender: FDA-Public Use
  Company Number: CH-TEVA-2019-CH-1058844

PATIENT
  Age: 3 Month
  Sex: Male

DRUGS (15)
  1. LEVETIRACETAM. [Suspect]
     Active Substance: LEVETIRACETAM
     Dosage: 440 MILLIGRAM DAILY;
     Route: 065
  2. VIMPAT [Concomitant]
     Active Substance: LACOSAMIDE
  3. MALTOFER (FERRIC HYDROXIDE POLYMALTOSE COMPLEX) [Concomitant]
     Active Substance: IRON POLYMALTOSE
  4. ASPIRINE [Concomitant]
     Active Substance: ASPIRIN
  5. MAGNESIUM [Concomitant]
     Active Substance: MAGNESIUM
  6. NOPIL [Suspect]
     Active Substance: SULFAMETHOXAZOLE\TRIMETHOPRIM
     Dosage: 200MG/40MG
     Route: 065
  7. AMLODIPINE [Concomitant]
     Active Substance: AMLODIPINE BESYLATE
  8. FLORINEF ACETATE [Concomitant]
     Active Substance: FLUDROCORTISONE ACETATE
  9. NACL [Concomitant]
     Active Substance: SODIUM CHLORIDE
  10. OMEPRAZOLE. [Suspect]
     Active Substance: OMEPRAZOLE
     Dosage: 10 MILLIGRAM DAILY;
     Route: 065
  11. MODIGRAF [Suspect]
     Active Substance: TACROLIMUS
     Dosage: 12 MILLIGRAM DAILY;
     Route: 065
  12. TRILEPTAL [Suspect]
     Active Substance: OXCARBAZEPINE
     Dosage: 320 MILLIGRAM DAILY;
     Route: 065
  13. VALCYTE [Concomitant]
     Active Substance: VALGANCICLOVIR HYDROCHLORIDE
  14. URSOFALK [Concomitant]
     Active Substance: URSODIOL
  15. CLEXANE [Concomitant]
     Active Substance: ENOXAPARIN SODIUM

REACTIONS (4)
  - Partial seizures [Not Recovered/Not Resolved]
  - Hyponatraemia [Not Recovered/Not Resolved]
  - Hypoaldosteronism [Not Recovered/Not Resolved]
  - Cardio-respiratory arrest [Recovered/Resolved]

NARRATIVE: CASE EVENT DATE: 201901
